FAERS Safety Report 20988377 (Version 4)
Quarter: 2022Q3

REPORT INFORMATION
  Report Type: Spontaneous
  Country: US (occurrence: US)
  Receive Date: 20220621
  Receipt Date: 20220715
  Transmission Date: 20221026
  Serious: No
  Sender: FDA-Public Use
  Company Number: US-PFIZER INC-PV202200006003

PATIENT
  Age: 79 Year
  Sex: Male
  Weight: 75.737 kg

DRUGS (1)
  1. BOSULIF [Suspect]
     Active Substance: BOSUTINIB MONOHYDRATE
     Indication: Chronic myeloid leukaemia
     Dosage: 400 MG, 1X/DAY (DAILY)
     Route: 048

REACTIONS (3)
  - Diarrhoea [Recovering/Resolving]
  - Fatigue [Unknown]
  - Oedema [Unknown]

NARRATIVE: CASE EVENT DATE: 20220501
